FAERS Safety Report 7749035-1 (Version None)
Quarter: 2011Q3

REPORT INFORMATION
  Report Type: 
  Country: None (occurrence: None)
  Receive Date: 20110914
  Receipt Date: 20110906
  Transmission Date: 20111222
  Serious: Yes (Other)
  Sender: FDA-Public Use
  Company Number: US-JNJFOC-20110903405

PATIENT
  Sex: Female

DRUGS (2)
  1. DOXIL [Suspect]
     Route: 042
  2. DOXIL [Suspect]
     Indication: PRODUCT USED FOR UNKNOWN INDICATION
     Route: 042
     Dates: start: 20110906, end: 20110906

REACTIONS (4)
  - WRONG TECHNIQUE IN DRUG USAGE PROCESS [None]
  - FLUSHING [None]
  - CHILLS [None]
  - HYPOTENSION [None]
